FAERS Safety Report 21144323 (Version 1)
Quarter: 2022Q3

REPORT INFORMATION
  Report Type: Spontaneous
  Country: US (occurrence: None)
  Receive Date: 20220728
  Receipt Date: 20220728
  Transmission Date: 20221027
  Serious: Yes (Other)
  Sender: FDA-Public Use
  Company Number: None

PATIENT
  Age: 57 Year
  Sex: Female
  Weight: 70.2 kg

DRUGS (5)
  1. ALBUTEROL SULFATE [Suspect]
     Active Substance: ALBUTEROL SULFATE
     Indication: Wheezing
     Dosage: OTHER STRENGTH : MCG;?OTHER QUANTITY : 2 PUFF(S);?OTHER FREQUENCY : PRIOR TO EXERCISE;?
     Route: 055
     Dates: start: 20220206, end: 20220226
  2. ALBUTEROL SULFATE [Suspect]
     Active Substance: ALBUTEROL SULFATE
     Indication: Cough
  3. VITAMIN D [Concomitant]
     Active Substance: VITAMIN D NOS
  4. CALCIUM CARBONATE [Concomitant]
     Active Substance: CALCIUM CARBONATE
  5. DICLOFENAC [Concomitant]
     Active Substance: DICLOFENAC

REACTIONS (10)
  - Wheezing [None]
  - Cough [None]
  - Dyspnoea [None]
  - Dizziness [None]
  - Bronchitis [None]
  - Bronchospasm [None]
  - Forced expiratory volume decreased [None]
  - Eosinophil count increased [None]
  - Symptom recurrence [None]
  - Adverse drug reaction [None]

NARRATIVE: CASE EVENT DATE: 20220206
